FAERS Safety Report 12804806 (Version 1)
Quarter: 2016Q4

REPORT INFORMATION
  Report Type: Spontaneous
  Country: JP (occurrence: JP)
  Receive Date: 20161003
  Receipt Date: 20161003
  Transmission Date: 20170207
  Serious: Yes (Death, Hospitalization)
  Sender: FDA-Public Use
  Company Number: JP-ELI_LILLY_AND_COMPANY-JP201609011256

PATIENT
  Age: 65 Year
  Sex: Male

DRUGS (2)
  1. PACLITAXEL. [Suspect]
     Active Substance: PACLITAXEL
     Indication: GASTRIC CANCER
     Dosage: 80 MG/M2, UNKNOWN
     Route: 042
     Dates: start: 20160907, end: 20160907
  2. CYRAMZA [Suspect]
     Active Substance: RAMUCIRUMAB
     Indication: GASTRIC CANCER
     Dosage: 8 MG, UNKNOWN
     Route: 042
     Dates: start: 20160907, end: 20160907

REACTIONS (2)
  - Platelet count decreased [Unknown]
  - Hypoglycaemia [Fatal]

NARRATIVE: CASE EVENT DATE: 20160914
